FAERS Safety Report 6674763-9 (Version None)
Quarter: 2010Q2

REPORT INFORMATION
  Report Type: 
  Country: None (occurrence: None)
  Receive Date: 20100409
  Receipt Date: 20100326
  Transmission Date: 20101027
  Serious: Yes (Death)
  Sender: FDA-Public Use
  Company Number: FR-PFIZER INC-2009199176

PATIENT
  Age: 85 Year
  Sex: Male
  Weight: 66 kg

DRUGS (2)
  1. CAMPTOSAR [Suspect]
     Indication: COLORECTAL CANCER
     Dosage: CYCLIC
     Route: 042
     Dates: start: 20090212, end: 20090326
  2. ERBITUX [Suspect]
     Dosage: CYCLIC
     Route: 042
     Dates: start: 20090212, end: 20090402

REACTIONS (8)
  - ANAEMIA [None]
  - ASTHENIA [None]
  - DECREASED APPETITE [None]
  - HAEMATOTOXICITY [None]
  - MUCOSAL INFLAMMATION [None]
  - PNEUMONIA ASPIRATION [None]
  - STOMATITIS [None]
  - VOMITING [None]
